FAERS Safety Report 4772350-0 (Version None)
Quarter: 2005Q3

REPORT INFORMATION
  Report Type: 
  Country: None (occurrence: None)
  Receive Date: 20050916
  Receipt Date: 20050902
  Transmission Date: 20060218
  Serious: Yes (Hospitalization)
  Sender: FDA-Public Use
  Company Number: 2005S1008635

PATIENT
  Age: 79 Year
  Sex: Female

DRUGS (11)
  1. EXTENDED PHENYTOIN SODIUM [Suspect]
     Indication: CONVULSION
     Dosage: SEE IMAGE
     Route: 048
     Dates: start: 19980101, end: 20050731
  2. EXTENDED PHENYTOIN SODIUM [Suspect]
     Indication: CONVULSION
     Dosage: SEE IMAGE
     Route: 048
     Dates: start: 20050808, end: 20050826
  3. EXTENDED PHENYTOIN SODIUM [Suspect]
     Indication: CONVULSION
     Dosage: SEE IMAGE
     Route: 048
     Dates: start: 20050808, end: 20050826
  4. EXTENDED PHENYTOIN SODIUM [Suspect]
     Indication: CONVULSION
     Dosage: SEE IMAGE
     Route: 048
     Dates: start: 20050830
  5. LIDOCAINE [Concomitant]
  6. VITAMINS NOS [Concomitant]
  7. CALCIUM GLUCONATE [Concomitant]
  8. VITAMIN B COMPLEX CAP [Concomitant]
  9. COD-LIVER OIL [Concomitant]
  10. ZINC [Concomitant]
  11. ASCORBIC ACID [Concomitant]

REACTIONS (5)
  - ANTICONVULSANT DRUG LEVEL BELOW THERAPEUTIC [None]
  - CONVULSION [None]
  - DYSARTHRIA [None]
  - GRAND MAL CONVULSION [None]
  - TREATMENT NONCOMPLIANCE [None]
